FAERS Safety Report 5034556-5 (Version None)
Quarter: 2006Q2

REPORT INFORMATION
  Report Type: 
  Country: None (occurrence: None)
  Receive Date: 20060621
  Receipt Date: 20060613
  Transmission Date: 20061013
  Serious: Yes (Hospitalization)
  Sender: FDA-Public Use
  Company Number: TPA2006A00691

PATIENT
  Age: 43 Year
  Sex: Female
  Weight: 102.9665 kg

DRUGS (11)
  1. ROZEREM [Suspect]
     Indication: INSOMNIA
     Dosage: 8 MG, HS, PER ORAL
     Route: 048
     Dates: start: 20060417, end: 20060418
  2. LEXAPRO (ESCITALOPRAM OXALATE (20 MILLIGRAM) [Concomitant]
  3. LISINOPRIL (LISINOPRIL) (20 MILLIGRAM) [Concomitant]
  4. METFORMIN (METFORMIN) (1500 MILLIGRAM) [Concomitant]
  5. VERAPAMIL (VERAPAMIL (240 MILLIGRAM) [Concomitant]
  6. AZO YEAST (YEAST) [Concomitant]
  7. PREVACID [Concomitant]
  8. COREG [Concomitant]
  9. ASA (ACETYLSALICYLIC ACID) (325 MILLIGRAM) [Concomitant]
  10. VICODIN ES [Concomitant]
  11. ENTEX LA (PHENYLEPHRINE HYDROCHLORIDE, GUAIFENESIN) [Concomitant]

REACTIONS (8)
  - CHEST PAIN [None]
  - COLD SWEAT [None]
  - ELECTROCARDIOGRAM QRS COMPLEX PROLONGED [None]
  - FEELING COLD [None]
  - NECK PAIN [None]
  - PAIN IN JAW [None]
  - SHOULDER PAIN [None]
  - SLEEP APNOEA SYNDROME [None]
